FAERS Safety Report 6880523-6 (Version None)
Quarter: 2010Q3

REPORT INFORMATION
  Report Type: 
  Country: None (occurrence: None)
  Receive Date: 20100727
  Receipt Date: 20100720
  Transmission Date: 20110219
  Serious: Yes (Other)
  Sender: FDA-Public Use
  Company Number: B0666743A

PATIENT
  Sex: Male
  Weight: 3.21 kg

DRUGS (3)
  1. LAMICTAL [Suspect]
     Indication: EPILEPSY
     Dosage: 120MG PER DAY
     Dates: start: 20090625
  2. PHENYTOIN [Concomitant]
     Indication: EPILEPSY
     Dosage: 250MG PER DAY
     Dates: start: 20020101, end: 20080711
  3. PHENOBARBITAL [Concomitant]
     Indication: EPILEPSY
     Dosage: 60MG PER DAY
     Dates: start: 20020101, end: 20080711

REACTIONS (2)
  - CONGENITAL NAIL DISORDER [None]
  - DRUG EXPOSURE DURING PREGNANCY [None]
